FAERS Safety Report 22257052 (Version 2)
Quarter: 2023Q2

REPORT INFORMATION
  Report Type: Report from Study
  Country: US (occurrence: US)
  Receive Date: 20230427
  Receipt Date: 20230524
  Transmission Date: 20230721
  Serious: Yes (Hospitalization, Other)
  Sender: FDA-Public Use
  Company Number: US-ABBVIE-4740822

PATIENT
  Sex: Male

DRUGS (1)
  1. IMBRUVICA [Suspect]
     Active Substance: IBRUTINIB
     Indication: Chronic lymphocytic leukaemia
     Route: 048
     Dates: start: 20160221

REACTIONS (6)
  - Cataract [Unknown]
  - Viral infection [Unknown]
  - Hypertension [Unknown]
  - Nasopharyngitis [Unknown]
  - Infection [Unknown]
  - Septic shock [Unknown]
